FAERS Safety Report 7359704-3 (Version None)
Quarter: 2011Q1

REPORT INFORMATION
  Report Type: 
  Country: None (occurrence: None)
  Receive Date: 20110317
  Receipt Date: 20100623
  Transmission Date: 20110831
  Serious: No
  Sender: FDA-Public Use
  Company Number: US-PFIZER INC-2010078503

PATIENT
  Sex: Female

DRUGS (2)
  1. NORVASC [Suspect]
     Dosage: UNK
  2. VESICARE [Suspect]
     Indication: URINARY INCONTINENCE
     Dosage: UNK

REACTIONS (5)
  - INSOMNIA [None]
  - ABDOMINAL PAIN [None]
  - DYSPEPSIA [None]
  - DRY MOUTH [None]
  - CONSTIPATION [None]
